FAERS Safety Report 13862426 (Version 2)
Quarter: 2018Q1

REPORT INFORMATION
  Report Type: Report from Study
  Country: FR (occurrence: FR)
  Receive Date: 20170814
  Receipt Date: 20180323
  Transmission Date: 20180508
  Serious: Yes (Other)
  Sender: FDA-Public Use
  Company Number: PHHO2017FR011394

PATIENT
  Age: 85 Year
  Sex: Female
  Weight: 65 kg

DRUGS (4)
  1. BLINDED NO TREATMENT RECEIVED [Suspect]
     Active Substance: INVESTIGATIONAL PRODUCT
     Indication: ENTEROSTOMY
     Dosage: CODE NOT BROKEN
     Route: 065
     Dates: start: 20170613
  2. BLINDED SOM230 [Suspect]
     Active Substance: PASIREOTIDE
     Indication: ENTEROSTOMY
     Dosage: CODE NOT BROKEN
     Route: 065
     Dates: start: 20170613
  3. BLINDED SOM230 SOMLAR+VIAL [Suspect]
     Active Substance: PASIREOTIDE
     Indication: ENTEROSTOMY
     Dosage: CODE NOT BROKEN
     Route: 065
     Dates: start: 20170613
  4. BLINDED PLACEBO [Suspect]
     Active Substance: INVESTIGATIONAL PRODUCT
     Indication: ENTEROSTOMY
     Dosage: CODE NOT BROKEN
     Route: 065
     Dates: start: 20170613

REACTIONS (2)
  - Hyperglycaemia [Unknown]
  - Device related infection [Recovered/Resolved]

NARRATIVE: CASE EVENT DATE: 20170724
